FAERS Safety Report 4921027-7 (Version None)
Quarter: 2006Q1

REPORT INFORMATION
  Report Type: 
  Country: None (occurrence: None)
  Receive Date: 20060217
  Receipt Date: 20060201
  Transmission Date: 20060701
  Serious: Yes (Death, Hospitalization)
  Sender: FDA-Public Use
  Company Number: 28578

PATIENT
  Age: 18 Year
  Sex: Female

DRUGS (1)
  1. FLECAINIDE ACETATE [Suspect]
     Indication: SUICIDE ATTEMPT
     Dosage: 5000 MG (5000 MG, 1 IN 1 DAY (S)) ORAL
     Route: 048
     Dates: start: 20040101, end: 20040101

REACTIONS (3)
  - CARDIOGENIC SHOCK [None]
  - INTENTIONAL OVERDOSE [None]
  - SUICIDE ATTEMPT [None]
